FAERS Safety Report 7215860-9 (Version None)
Quarter: 2011Q1

REPORT INFORMATION
  Report Type: 
  Country: None (occurrence: None)
  Receive Date: 20110107
  Receipt Date: 20101228
  Transmission Date: 20110831
  Serious: Yes (Other)
  Sender: FDA-Public Use
  Company Number: PHHY2008JP11865

PATIENT
  Age: 32 Year
  Sex: Male

DRUGS (16)
  1. SANDIMMUNE [Suspect]
     Dosage: 300 MG, UNK
     Route: 048
     Dates: start: 19940919, end: 19950919
  2. SANDIMMUNE [Suspect]
     Dosage: 700 MG, UNK
     Route: 048
     Dates: start: 19921102, end: 19921201
  3. SANDIMMUNE [Suspect]
     Dosage: 250 MG, UNK
     Route: 048
     Dates: start: 19950920
  4. MYCOPHENOLATE MOFETIL [Concomitant]
     Indication: HEART TRANSPLANT
     Dosage: UNK
     Dates: end: 19970101
  5. STEROIDS NOS [Concomitant]
     Dosage: STARTING 250MG, DECREASED TO 5MG
     Route: 048
     Dates: start: 19921023, end: 20050131
  6. EVEROLIMUS [Concomitant]
  7. SANDIMMUNE [Suspect]
     Indication: HEART TRANSPLANT
     Dosage: 300 MG, UNK
     Route: 048
     Dates: start: 19921027, end: 19921028
  8. SANDIMMUNE [Suspect]
     Dosage: 400 MG, UNK
     Route: 048
     Dates: start: 19930921, end: 19940530
  9. ASPIRIN [Concomitant]
     Dosage: UNK
     Dates: start: 19970101, end: 19970101
  10. SANDIMMUNE [Suspect]
     Dosage: 400 MG, UNK
     Route: 048
     Dates: start: 19930120, end: 19930101
  11. SANDIMMUNE [Suspect]
     Dosage: 450 MG, UNK
     Route: 048
     Dates: start: 19930305, end: 19930920
  12. NEORAL [Suspect]
     Indication: HEART TRANSPLANT
     Dosage: 250 MG, UNK
     Dates: start: 19961116
  13. SANDIMMUNE [Suspect]
     Dosage: 350 MG, UNK
     Route: 048
     Dates: start: 19940531, end: 19940918
  14. SANDIMMUNE [Suspect]
     Dosage: 500 MG, UNK
     Route: 048
     Dates: start: 19921029, end: 19921101
  15. SANDIMMUNE [Suspect]
     Dosage: 500 MG, UNK
     Route: 048
     Dates: start: 19921202, end: 19930119
  16. AZATHIOPRINE [Concomitant]
     Indication: HEART TRANSPLANT
     Dosage: UNK
     Dates: end: 19970101

REACTIONS (5)
  - CORONARY ARTERY DISEASE [None]
  - PERCUTANEOUS CORONARY INTERVENTION [None]
  - CORONARY ARTERY STENOSIS [None]
  - HEART TRANSPLANT REJECTION [None]
  - CORONARY ARTERIAL STENT INSERTION [None]
